FAERS Safety Report 7247594-9 (Version None)
Quarter: 2011Q1

REPORT INFORMATION
  Report Type: 
  Country: None (occurrence: None)
  Receive Date: 20110127
  Receipt Date: 20110125
  Transmission Date: 20110831
  Serious: Yes (Hospitalization, Other)
  Sender: FDA-Public Use
  Company Number: US-ABBOTT-11P-163-0700521-00

PATIENT
  Sex: Female
  Weight: 133.48 kg

DRUGS (5)
  1. LORTAB [Concomitant]
     Indication: OSTEONECROSIS
  2. HUMIRA [Suspect]
     Dates: start: 20090801, end: 20090801
  3. TRIAMCINALONE [Concomitant]
     Indication: PSORIASIS
     Route: 061
  4. UNKNOWN MEDICATION [Concomitant]
     Indication: GASTROOESOPHAGEAL REFLUX PROPHYLAXIS
  5. HUMIRA [Suspect]
     Indication: PSORIASIS
     Route: 058
     Dates: start: 20080101, end: 20080101

REACTIONS (11)
  - SWELLING [None]
  - SKIN FISSURES [None]
  - WOUND DRAINAGE [None]
  - ERYTHRODERMIC PSORIASIS [None]
  - IMPAIRED WORK ABILITY [None]
  - SPEECH DISORDER [None]
  - FLUID RETENTION [None]
  - PYREXIA [None]
  - PAIN [None]
  - SKIN EXFOLIATION [None]
  - ALOPECIA [None]
